FAERS Safety Report 5495971-9 (Version None)
Quarter: 2007Q4

REPORT INFORMATION
  Report Type: 
  Country: None (occurrence: None)
  Receive Date: 20071025
  Receipt Date: 20070104
  Transmission Date: 20080405
  Serious: No
  Sender: FDA-Public Use
  Company Number: A0634127A

PATIENT
  Sex: Female

DRUGS (2)
  1. ADVAIR DISKUS 100/50 [Suspect]
     Indication: ASTHMA
     Dosage: 1PUFF TWICE PER DAY
     Route: 055
     Dates: start: 20061228
  2. LEVAQUIN [Suspect]
     Indication: DRUG USE FOR UNKNOWN INDICATION
     Route: 065
     Dates: start: 20061228

REACTIONS (2)
  - CHEST PAIN [None]
  - DYSPHONIA [None]
